FAERS Safety Report 7633590 (Version 3)
Quarter: 2014Q3

REPORT INFORMATION
  Report Type: Report from Study
  Country: DE (occurrence: DE)
  Receive Date: 20101019
  Receipt Date: 20140922
  Transmission Date: 20150326
  Serious: Yes (Hospitalization, Other)
  Sender: FDA-Public Use
  Company Number: DE-ROCHE-731979

PATIENT
  Age: 29 Year
  Sex: Male
  Weight: 150 kg

DRUGS (2)
  1. BLINDED TENOFOVIR [Suspect]
     Active Substance: TENOFOVIR
     Indication: HEPATITIS D
     Dosage: LASET DOSE PRIOR TO SAE: 24 SEP 2010.
     Route: 048
     Dates: start: 20091030
  2. PEGINTERFERON ALFA-2A [Suspect]
     Active Substance: PEGINTERFERON ALFA-2A
     Indication: HEPATITIS D
     Dosage: LAST DOSE PRIOR TO SAE: 23 SEPTEMBER 2010
     Route: 058

REACTIONS (3)
  - Abscess sweat gland [Recovered/Resolved]
  - Thrombosis [Recovered/Resolved]
  - Lobar pneumonia [Recovered/Resolved]

NARRATIVE: CASE EVENT DATE: 20100908
